FAERS Safety Report 7822979-8 (Version None)
Quarter: 2011Q4

REPORT INFORMATION
  Report Type: 
  Country: None (occurrence: None)
  Receive Date: 20111018
  Receipt Date: 20110105
  Transmission Date: 20120403
  Serious: No
  Sender: FDA-Public Use
  Company Number: US-ASTRAZENECA-2011SE01126

PATIENT
  Age: 52 Year
  Sex: Male

DRUGS (4)
  1. CRESTOR [Suspect]
     Route: 048
  2. TOPROL-XL [Suspect]
     Route: 048
  3. SYMBICORT [Suspect]
     Route: 055
  4. SEROQUEL [Suspect]
     Route: 048

REACTIONS (1)
  - PNEUMONIA [None]
